FAERS Safety Report 6043206-0 (Version None)
Quarter: 2009Q1

REPORT INFORMATION
  Report Type: 
  Country: None (occurrence: None)
  Receive Date: 20090119
  Receipt Date: 20090114
  Transmission Date: 20090719
  Serious: Yes (Death)
  Sender: FDA-Public Use
  Company Number: DE-ABBOTT-09P-062-0497864-00

PATIENT
  Sex: Male
  Weight: 60 kg

DRUGS (7)
  1. KALETRA [Suspect]
     Indication: HIV INFECTION
     Dosage: 200MG/50 MG
     Route: 048
  2. KALETRA [Suspect]
     Indication: ACQUIRED IMMUNODEFICIENCY SYNDROME
  3. KLACID INJECTION [Suspect]
     Indication: MYCOBACTERIUM AVIUM COMPLEX INFECTION
  4. ABACAVIR SULFATE/LAMIVUDINE [Concomitant]
     Indication: HIV INFECTION
  5. ABACAVIR SULFATE/LAMIVUDINE [Concomitant]
     Indication: ACQUIRED IMMUNODEFICIENCY SYNDROME
  6. SPIRO [Concomitant]
     Indication: MYCOBACTERIUM AVIUM COMPLEX INFECTION
  7. NOVAMINSULFON [Concomitant]
     Indication: MYCOBACTERIUM AVIUM COMPLEX INFECTION

REACTIONS (2)
  - MEDIASTINITIS [None]
  - MYCOBACTERIUM AVIUM COMPLEX INFECTION [None]
